FAERS Safety Report 23059129 (Version 4)
Quarter: 2023Q4

REPORT INFORMATION
  Report Type: Spontaneous
  Country: DE (occurrence: DE)
  Receive Date: 20231012
  Receipt Date: 20231227
  Transmission Date: 20240110
  Serious: Yes (Hospitalization, Other)
  Sender: FDA-Public Use
  Company Number: DE-ROCHE-3430723

PATIENT
  Age: 40 Year
  Sex: Female
  Weight: 72 kg

DRUGS (21)
  1. KESIMPTA [Suspect]
     Active Substance: OFATUMUMAB
     Indication: Relapsing multiple sclerosis
     Dosage: UNK
     Route: 065
     Dates: start: 202206
  2. KESIMPTA [Suspect]
     Active Substance: OFATUMUMAB
     Dosage: 20 MG, QMO
     Route: 058
     Dates: start: 20221201
  3. MOVICOL [Concomitant]
     Active Substance: POLYETHYLENE GLYCOL 3350\POTASSIUM CHLORIDE\SODIUM BICARBONATE\SODIUM CHLORIDE
     Indication: Constipation
     Dosage: 1 DOSAGE FORM, QD
     Route: 065
     Dates: start: 202009
  4. CIPRALEX [Concomitant]
     Active Substance: ESCITALOPRAM OXALATE
     Indication: Product used for unknown indication
     Dosage: 10 MG, QD
     Route: 065
     Dates: start: 201409
  5. CHOLECALCIFEROL [Concomitant]
     Active Substance: CHOLECALCIFEROL
     Indication: Vitamin D deficiency
     Dosage: 20000 IU, QW
     Route: 065
     Dates: start: 201610
  6. SPASMEX [Concomitant]
     Indication: Neurogenic bladder
     Dosage: 15 MG (0.33 DAY)
     Route: 065
     Dates: start: 20190604, end: 20190612
  7. SPASMEX [Concomitant]
     Dosage: 15 MG, (DEFINITION OF THE INTERVAL: AS REQUIRED)
     Route: 065
     Dates: start: 201909
  8. PNEUMOVAX 23 [Concomitant]
     Active Substance: PNEUMOCOCCAL VACCINE, POLYVALENT 23
     Indication: Pneumococcal immunisation
     Dosage: 0.5 ML, QD
     Route: 065
     Dates: start: 20220222, end: 20220222
  9. PREDNISOLONE [Concomitant]
     Active Substance: PREDNISOLONE
     Indication: Multiple sclerosis relapse
     Dosage: 50 MG
     Route: 065
     Dates: start: 20190212, end: 20190214
  10. BOOSTRIX [Concomitant]
     Active Substance: TETANUS TOXOID, REDUCED DIPHTHERIA TOXOID AND ACELLULAR PERTUSSIS VACCINE, ADSORBED ANTIGENS
     Indication: Immunisation
     Dosage: 0.5 ML, QD
     Route: 065
     Dates: start: 20180927, end: 20180927
  11. TIZANIDINE HYDROCHLORIDE [Concomitant]
     Active Substance: TIZANIDINE HYDROCHLORIDE
     Indication: Spinal pain
     Dosage: 2 MG, QD
     Route: 065
     Dates: start: 20190115, end: 201902
  12. NEURONTIN [Concomitant]
     Active Substance: GABAPENTIN
     Indication: Product used for unknown indication
     Dosage: 300 MG
     Route: 065
     Dates: start: 201912
  13. NEURONTIN [Concomitant]
     Active Substance: GABAPENTIN
     Dosage: 600 MG, QD
     Route: 065
     Dates: start: 201912
  14. NEURONTIN [Concomitant]
     Active Substance: GABAPENTIN
     Dosage: 300 MG
     Route: 065
     Dates: end: 20221110
  15. NEURONTIN [Concomitant]
     Active Substance: GABAPENTIN
     Dosage: 300 MG
     Route: 065
     Dates: start: 201807, end: 201912
  16. NEURONTIN [Concomitant]
     Active Substance: GABAPENTIN
     Dosage: 300 MG
     Route: 065
     Dates: start: 20221111
  17. INFLUVAC [Concomitant]
     Active Substance: INFLUENZA VIRUS VACCINE TRIVALENT TYPE A+B
     Indication: Immunisation
     Dosage: 0.5 ML, QD
     Route: 065
     Dates: start: 20180927, end: 20180927
  18. LORATADINE [Concomitant]
     Active Substance: LORATADINE
     Indication: Seasonal allergy
     Dosage: DEFINITION OF THE INTERVAL: AS REQUIRED
     Route: 065
  19. BETAMETHASONE DIPROPIONATE\GENTAMICIN SULFATE [Concomitant]
     Active Substance: BETAMETHASONE DIPROPIONATE\GENTAMICIN SULFATE
     Indication: Neurodermatitis
     Dosage: DEFINITION OF THE INTERVAL: AS REQUIRED
     Route: 065
     Dates: start: 201911
  20. IBUPROFEN [Concomitant]
     Active Substance: IBUPROFEN
     Indication: Spinal pain
     Dosage: 600 MG
     Route: 065
     Dates: start: 201808
  21. PROPIVERINE HYDROCHLORIDE [Concomitant]
     Active Substance: PROPIVERINE HYDROCHLORIDE
     Indication: Neurogenic bladder
     Dosage: 15 MG (0.33 DAY)
     Route: 065
     Dates: start: 20190613, end: 20190620

REACTIONS (8)
  - Impaired healing [Not Recovered/Not Resolved]
  - Female genital tract fistula [Not Recovered/Not Resolved]
  - Infection [Unknown]
  - Haematochezia [Not Recovered/Not Resolved]
  - Mucous stools [Not Recovered/Not Resolved]
  - Vaginitis gardnerella [Unknown]
  - COVID-19 [Recovered/Resolved]
  - Uterine inflammation [Not Recovered/Not Resolved]

NARRATIVE: CASE EVENT DATE: 20220601
